FAERS Safety Report 4559803-5 (Version None)
Quarter: 2005Q1

REPORT INFORMATION
  Report Type: 
  Country: None (occurrence: None)
  Receive Date: 20050124
  Receipt Date: 20030605
  Transmission Date: 20050727
  Serious: Yes (Hospitalization, Disabling, Other)
  Sender: FDA-Public Use
  Company Number: US-MERCK-0306USA00653

PATIENT
  Age: 41 Year
  Sex: Male

DRUGS (8)
  1. VIOXX [Suspect]
     Indication: INFLAMMATION
     Route: 048
     Dates: start: 20010301
  2. VIOXX [Suspect]
     Route: 048
     Dates: start: 20020819
  3. VIOXX [Suspect]
     Route: 048
     Dates: start: 20000419
  4. VIOXX [Suspect]
     Indication: BACK PAIN
     Route: 048
     Dates: start: 20010301
  5. VIOXX [Suspect]
     Route: 048
     Dates: start: 20020819
  6. VIOXX [Suspect]
     Route: 048
     Dates: start: 20000419
  7. CLARITIN [Concomitant]
     Route: 065
  8. ANALGESIC OR ANESTHETIC (UNSPECIFIED) [Concomitant]
     Route: 065

REACTIONS (14)
  - ADVERSE EVENT [None]
  - CHEST PAIN [None]
  - DEPRESSION [None]
  - DIZZINESS [None]
  - HYPERLIPIDAEMIA [None]
  - HYPERTENSION [None]
  - HYPERTONIC BLADDER [None]
  - INSOMNIA [None]
  - INTERVERTEBRAL DISC DEGENERATION [None]
  - INTERVERTEBRAL DISC PROTRUSION [None]
  - PROSTATITIS [None]
  - PROTEINURIA [None]
  - SUICIDAL IDEATION [None]
  - TINEA INFECTION [None]
